FAERS Safety Report 12669139 (Version 1)
Quarter: 2016Q3

REPORT INFORMATION
  Report Type: Spontaneous
  Country: DE (occurrence: DE)
  Receive Date: 20160819
  Receipt Date: 20160819
  Transmission Date: 20161109
  Serious: Yes (Life-Threatening, Hospitalization)
  Sender: FDA-Public Use
  Company Number: DE-BRACCO-002204

PATIENT
  Age: 78 Year
  Sex: Male
  Weight: 88 kg

DRUGS (1)
  1. MULTIHANCE [Suspect]
     Active Substance: GADOBENATE DIMEGLUMINE
     Indication: NUCLEAR MAGNETIC RESONANCE IMAGING
     Route: 042
     Dates: start: 20160803, end: 20160803

REACTIONS (3)
  - Contrast media reaction [Unknown]
  - Cardiac arrest [Unknown]
  - Infarction [Unknown]

NARRATIVE: CASE EVENT DATE: 20160803
